FAERS Safety Report 8976390 (Version 1)
Quarter: 2012Q4

REPORT INFORMATION
  Report Type: 
  Country: US (occurrence: US)
  Receive Date: 20121220
  Receipt Date: 20121220
  Transmission Date: 20130627
  Serious: Yes (Other)
  Sender: FDA-Public Use
  Company Number: US-FOUGERA-2012FO001417

PATIENT
  Sex: Male

DRUGS (1)
  1. FLUOCINONIDE [Suspect]
     Indication: PRURITUS

REACTIONS (1)
  - Intraocular pressure increased [Unknown]
